FAERS Safety Report 6246319-3 (Version None)
Quarter: 2009Q2

REPORT INFORMATION
  Report Type: 
  Country: None (occurrence: None)
  Receive Date: 20090626
  Receipt Date: 20090624
  Transmission Date: 20091009
  Serious: Yes (Other)
  Sender: FDA-Public Use
  Company Number: US-BAYER-200817995NA

PATIENT
  Age: 39 Year
  Sex: Female
  Weight: 59 kg

DRUGS (1)
  1. YAZ [Suspect]
     Indication: CONTRACEPTION
     Dosage: ONE TABLET PER DAY
     Route: 048
     Dates: start: 20080303, end: 20090101

REACTIONS (6)
  - BILIRUBINURIA [None]
  - CHEST DISCOMFORT [None]
  - DIZZINESS [None]
  - METRORRHAGIA [None]
  - NAUSEA [None]
  - PALPITATIONS [None]
